FAERS Safety Report 11445007 (Version 2)
Quarter: 2015Q4

REPORT INFORMATION
  Report Type: Spontaneous
  Country: CO (occurrence: CO)
  Receive Date: 20150902
  Receipt Date: 20151008
  Transmission Date: 20160304
  Serious: Yes (Death, Hospitalization)
  Sender: FDA-Public Use
  Company Number: CO-JNJFOC-20150823757

PATIENT
  Age: 71 Year
  Sex: Male
  Weight: 74 kg

DRUGS (2)
  1. PREDNISOLONE. [Concomitant]
     Active Substance: PREDNISOLONE
     Indication: PROSTATE CANCER
     Route: 048
     Dates: start: 20150218, end: 20150814
  2. ZYTIGA [Suspect]
     Active Substance: ABIRATERONE ACETATE
     Indication: PROSTATE CANCER
     Route: 048
     Dates: start: 20150218, end: 20150814

REACTIONS (2)
  - Myocardial infarction [Fatal]
  - Cerebral ischaemia [Not Recovered/Not Resolved]

NARRATIVE: CASE EVENT DATE: 20150811
